FAERS Safety Report 5529776-7 (Version None)
Quarter: 2007Q4

REPORT INFORMATION
  Report Type: 
  Country: None (occurrence: None)
  Receive Date: 20071129
  Receipt Date: 20070807
  Transmission Date: 20080405
  Serious: No
  Sender: FDA-Public Use
  Company Number: US-ABBOTT-07P-163-0376917-00

PATIENT
  Sex: Female
  Weight: 90.8 kg

DRUGS (4)
  1. MERIDIA [Suspect]
     Indication: WEIGHT CONTROL
     Route: 048
     Dates: start: 20070423, end: 20070430
  2. MERIDIA [Suspect]
     Route: 048
     Dates: start: 20070430, end: 20070731
  3. MERIDIA [Suspect]
     Route: 048
     Dates: start: 20070731
  4. VITAMINS [Concomitant]
     Indication: VITAMIN SUPPLEMENTATION
     Route: 048

REACTIONS (3)
  - BLOOD PRESSURE INCREASED [None]
  - FEELING ABNORMAL [None]
  - HEADACHE [None]
